FAERS Safety Report 6217373-X (Version None)
Quarter: 2009Q2

REPORT INFORMATION
  Report Type: 
  Country: None (occurrence: None)
  Receive Date: 20090608
  Receipt Date: 20080820
  Transmission Date: 20091009
  Serious: No
  Sender: FDA-Public Use
  Company Number: A0743729A

PATIENT
  Sex: Female

DRUGS (10)
  1. WELLBUTRIN XL [Suspect]
     Indication: DEPRESSION
     Dosage: 300MG PER DAY
     Route: 048
     Dates: start: 20080701
  2. LIPITOR [Concomitant]
  3. THYROID MEDICATION [Concomitant]
  4. ZETIA [Concomitant]
  5. PLAVIX [Concomitant]
  6. NORVASC [Concomitant]
  7. DIOVAN [Concomitant]
  8. POTASSIUM CHLORIDE [Concomitant]
  9. LEVODOPA [Concomitant]
  10. CALCIUM [Concomitant]

REACTIONS (1)
  - PSYCHOMOTOR HYPERACTIVITY [None]
